FAERS Safety Report 17694220 (Version 1)
Quarter: 2020Q2

REPORT INFORMATION
  Report Type: Spontaneous
  Country: US (occurrence: US)
  Receive Date: 20200420
  Receipt Date: 20200420
  Transmission Date: 20200714
  Serious: Yes (Hospitalization)
  Sender: FDA-Public Use
  Company Number: None

PATIENT
  Age: 69 Year
  Sex: Male
  Weight: 79.79 kg

DRUGS (1)
  1. DABRAFENIB (DABRAFENIB 75MG CAP, ORAL) [Suspect]
     Active Substance: DABRAFENIB
     Indication: HYPOTENSION
     Route: 048
     Dates: start: 20180514

REACTIONS (5)
  - Nausea [None]
  - Asthenia [None]
  - Haematemesis [None]
  - Vomiting [None]
  - Hypotension [None]

NARRATIVE: CASE EVENT DATE: 20180528
